FAERS Safety Report 8767974 (Version 1)
Quarter: 2012Q4

REPORT INFORMATION
  Report Type: 
  Country: US (occurrence: US)
  Receive Date: 20120905
  Receipt Date: 20120905
  Transmission Date: 20130627
  Serious: Yes (Death, Other)
  Sender: FDA-Public Use
  Company Number: US-CELGENEUS-163-21880-12083401

PATIENT
  Age: 67 Year

DRUGS (2)
  1. REVLIMID [Suspect]
     Indication: CHRONIC LYMPHOCYTIC LEUKEMIA
     Route: 048
  2. RITUXIMAB [Suspect]
     Indication: CHRONIC LYMPHOCYTIC LEUKEMIA
     Route: 065

REACTIONS (4)
  - Sepsis [Fatal]
  - Ecthyma [Unknown]
  - Fatigue [Unknown]
  - Asthenia [Unknown]
